FAERS Safety Report 5634900-1 (Version None)
Quarter: 2008Q1

REPORT INFORMATION
  Report Type: 
  Country: None (occurrence: None)
  Receive Date: 20080131
  Receipt Date: 20071015
  Transmission Date: 20080703
  Serious: No
  Sender: FDA-Public Use
  Company Number: PHEH2007US12983

PATIENT
  Sex: Female

DRUGS (2)
  1. TEKTURNA [Suspect]
  2. VASOTEC [Concomitant]

REACTIONS (5)
  - BLOOD PRESSURE INADEQUATELY CONTROLLED [None]
  - BLOOD PRESSURE INCREASED [None]
  - DRUG INEFFECTIVE [None]
  - OEDEMA PERIPHERAL [None]
  - STRESS [None]
